FAERS Safety Report 10695254 (Version 1)
Quarter: 2015Q1

REPORT INFORMATION
  Report Type: Spontaneous
  Country: US (occurrence: None)
  Receive Date: 20150106
  Receipt Date: 20150106
  Transmission Date: 20150721
  Serious: No
  Sender: FDA-Public Use
  Company Number: None

PATIENT
  Age: 48 Year
  Sex: Male

DRUGS (1)
  1. HUMIRA [Suspect]
     Active Substance: ADALIMUMAB
     Indication: PSORIASIS
     Dosage: 40MG, Q O WEEK, SUBCUTANEOUS
     Route: 058
     Dates: start: 20140904, end: 20141223

REACTIONS (5)
  - Condition aggravated [None]
  - Psoriasis [None]
  - Fatigue [None]
  - Drug ineffective [None]
  - Unevaluable event [None]

NARRATIVE: CASE EVENT DATE: 201410
